FAERS Safety Report 16296610 (Version 1)
Quarter: 2019Q2

REPORT INFORMATION
  Report Type: Spontaneous
  Country: US (occurrence: US)
  Receive Date: 20190509
  Receipt Date: 20190509
  Transmission Date: 20190711
  Serious: Yes (Hospitalization)
  Sender: FDA-Public Use
  Company Number: None

PATIENT
  Age: 44 Year
  Sex: Female

DRUGS (6)
  1. HUMIRA [Suspect]
     Active Substance: ADALIMUMAB
     Indication: PSORIATIC ARTHROPATHY
     Dosage: ?          OTHER FREQUENCY:EVERY OTHER WEEK;?
     Route: 058
     Dates: start: 20171012
  2. MELOXICAM. [Concomitant]
     Active Substance: MELOXICAM
  3. BACLOFEN. [Concomitant]
     Active Substance: BACLOFEN
  4. PREDNISONE. [Concomitant]
     Active Substance: PREDNISONE
  5. PROGESTERONE. [Concomitant]
     Active Substance: PROGESTERONE
  6. ESTRADOIL [Concomitant]

REACTIONS (4)
  - Product dose omission [None]
  - Rash [None]
  - Condition aggravated [None]
  - Arthritis [None]

NARRATIVE: CASE EVENT DATE: 20190411
